FAERS Safety Report 9981481 (Version 1)
Quarter: 2014Q1

REPORT INFORMATION
  Report Type: Spontaneous
  Country: US (occurrence: None)
  Receive Date: 20140306
  Receipt Date: 20140306
  Transmission Date: 20141002
  Serious: Yes (Other)
  Sender: FDA-Public Use
  Company Number: None

PATIENT
  Sex: Female
  Weight: 99 kg

DRUGS (4)
  1. LOSARTAN [Suspect]
     Indication: HYPERTENSION
     Dosage: PEA SIZE DAB TWICE DAILY APPLIED TO A SURFACE, USUALLY THE SKIN
     Route: 048
     Dates: start: 201402
  2. LOSARTAN [Suspect]
     Indication: CARDIAC FAILURE
     Dosage: PEA SIZE DAB TWICE DAILY APPLIED TO A SURFACE, USUALLY THE SKIN
     Route: 048
     Dates: start: 201402
  3. DIGOXIN [Concomitant]
  4. CARVEDILOL [Concomitant]

REACTIONS (4)
  - Vomiting [None]
  - Reaction to drug excipients [None]
  - Product substitution issue [None]
  - Drug intolerance [None]
